FAERS Safety Report 8298692-2 (Version None)
Quarter: 2012Q2

REPORT INFORMATION
  Report Type: 
  Country: None (occurrence: None)
  Receive Date: 20120419
  Receipt Date: 20120411
  Transmission Date: 20120825
  Serious: Yes (Death)
  Sender: FDA-Public Use
  Company Number: EG-SANOFI-AVENTIS-2012SA026081

PATIENT
  Age: 68 Year
  Sex: Female

DRUGS (1)
  1. LANTUS [Suspect]
     Indication: DIABETES MELLITUS
     Dosage: DOSE:42 UNIT(S)
     Route: 058
     Dates: start: 20111103, end: 20120211

REACTIONS (2)
  - RENAL DISORDER [None]
  - CONDITION AGGRAVATED [None]
